FAERS Safety Report 8338845-8 (Version None)
Quarter: 2012Q2

REPORT INFORMATION
  Report Type: 
  Country: None (occurrence: None)
  Receive Date: 20120504
  Receipt Date: 20120427
  Transmission Date: 20120825
  Serious: No
  Sender: FDA-Public Use
  Company Number: US-MERCK-1201USA03347

PATIENT
  Age: 4 Year
  Sex: Male
  Weight: 21 kg

DRUGS (6)
  1. SINGULAIR [Suspect]
     Route: 048
     Dates: start: 20120423
  2. SINGULAIR [Suspect]
     Indication: PSYCHOMOTOR HYPERACTIVITY
     Route: 048
     Dates: start: 20111115, end: 20111201
  3. SINGULAIR [Suspect]
     Route: 048
     Dates: start: 20120423
  4. SINGULAIR [Suspect]
     Indication: HYPERSENSITIVITY
     Route: 048
     Dates: start: 20111115, end: 20111201
  5. SINGULAIR [Suspect]
     Route: 048
     Dates: start: 20120423
  6. SINGULAIR [Suspect]
     Indication: SINUSITIS
     Route: 048
     Dates: start: 20111115, end: 20111201

REACTIONS (7)
  - OFF LABEL USE [None]
  - ABNORMAL BEHAVIOUR [None]
  - ANGER [None]
  - AGGRESSION [None]
  - SCREAMING [None]
  - OPPOSITIONAL DEFIANT DISORDER [None]
  - AGITATION [None]
